FAERS Safety Report 5477903-2 (Version None)
Quarter: 2007Q4

REPORT INFORMATION
  Report Type: 
  Country: None (occurrence: None)
  Receive Date: 20071005
  Receipt Date: 20070927
  Transmission Date: 20080405
  Serious: Yes (Other)
  Sender: FDA-Public Use
  Company Number: PHBS2007BE16255

PATIENT
  Sex: Female

DRUGS (1)
  1. MIACALCIN [Suspect]
     Route: 065

REACTIONS (2)
  - HYPERCALCIURIA [None]
  - NEPHROLITHIASIS [None]
